FAERS Safety Report 9732360 (Version 2)
Quarter: 2014Q1

REPORT INFORMATION
  Report Type: Report from Study
  Country: US (occurrence: US)
  Receive Date: 20131204
  Receipt Date: 20140314
  Transmission Date: 20141002
  Serious: Yes (Disabling, Other)
  Sender: FDA-Public Use
  Company Number: US-ABBVIE-13P-163-1174059-00

PATIENT
  Sex: Female
  Weight: 112.59 kg

DRUGS (7)
  1. HUMIRA [Suspect]
     Indication: RHEUMATOID ARTHRITIS
     Dates: start: 2010, end: 201301
  2. HUMIRA [Suspect]
     Dates: start: 20131111
  3. ARAVA [Concomitant]
     Indication: RHEUMATOID ARTHRITIS
  4. FISH OIL [Concomitant]
     Indication: VITAMIN SUPPLEMENTATION
  5. GLUCOSAMINE [Concomitant]
     Indication: ARTHROPATHY
  6. VITAMIN C [Concomitant]
     Indication: VITAMIN SUPPLEMENTATION
  7. FLAX SEED OIL [Concomitant]
     Indication: VITAMIN SUPPLEMENTATION

REACTIONS (9)
  - Nodule [Recovered/Resolved]
  - Hepatitis B virus test positive [Recovered/Resolved]
  - Nail infection [Recovered/Resolved]
  - Limb injury [Recovered/Resolved]
  - Fall [Recovered/Resolved]
  - Rotator cuff syndrome [Recovered/Resolved]
  - Gastroenteritis viral [Recovered/Resolved]
  - Nausea [Recovered/Resolved]
  - Diarrhoea [Recovered/Resolved]
